FAERS Safety Report 8022174-6 (Version None)
Quarter: 2012Q1

REPORT INFORMATION
  Report Type: 
  Country: None (occurrence: None)
  Receive Date: 20120104
  Receipt Date: 20111228
  Transmission Date: 20120608
  Serious: Yes (Other)
  Sender: FDA-Public Use
  Company Number: US-PFIZER INC-2010035796

PATIENT
  Sex: Female
  Weight: 87.08 kg

DRUGS (7)
  1. ESTROGENS CONJUGATED/PROGESTERONE [Concomitant]
     Dosage: UNK
  2. PERCOCET [Concomitant]
     Dosage: UNK
  3. POTASSIUM [Concomitant]
     Dosage: UNK
  4. LYRICA [Suspect]
     Indication: FIBROMYALGIA
     Dosage: 50 MG, 3X/DAY
     Route: 048
  5. HYDROCODONE [Concomitant]
     Dosage: UNK
  6. ADVAIR DISKUS 100/50 [Concomitant]
     Dosage: 5/500 MG, UNK
  7. DIOVAN HCT [Concomitant]
     Dosage: 160/12.5 MG, UNK

REACTIONS (8)
  - MENTAL IMPAIRMENT [None]
  - WEIGHT INCREASED [None]
  - ROTATOR CUFF SYNDROME [None]
  - MUSCLE TIGHTNESS [None]
  - BRUXISM [None]
  - DYSPNOEA [None]
  - TINNITUS [None]
  - FEELING DRUNK [None]
